FAERS Safety Report 21441014 (Version 1)
Quarter: 2022Q4

REPORT INFORMATION
  Report Type: Spontaneous
  Country: RO (occurrence: RO)
  Receive Date: 20221011
  Receipt Date: 20221011
  Transmission Date: 20230113
  Serious: Yes (Other)
  Sender: FDA-Public Use
  Company Number: RO-GILEAD-2022-0601009

PATIENT
  Sex: Male

DRUGS (1)
  1. EPCLUSA [Suspect]
     Active Substance: SOFOSBUVIR\VELPATASVIR
     Indication: Hepatitis C
     Dosage: 1 DOSAGE FORM, QD (FOR 12 WEEKS)
     Route: 065
     Dates: start: 20220627

REACTIONS (3)
  - Neutropenia [Not Recovered/Not Resolved]
  - Diarrhoea [Unknown]
  - Arthropod sting [Unknown]
